FAERS Safety Report 21928433 (Version 1)
Quarter: 2023Q1

REPORT INFORMATION
  Report Type: Spontaneous
  Country: CN (occurrence: CN)
  Receive Date: 20230130
  Receipt Date: 20230130
  Transmission Date: 20230418
  Serious: Yes (Hospitalization, Other)
  Sender: FDA-Public Use
  Company Number: CN-BRISTOL-MYERS SQUIBB COMPANY-2023-011893

PATIENT
  Age: 38 Year
  Sex: Female
  Weight: 57.5 kg

DRUGS (4)
  1. ABRAXANE [Suspect]
     Active Substance: PACLITAXEL
     Indication: Breast cancer
     Dosage: DOSE : 400 MG;     FREQ : 1/21D
     Route: 041
     Dates: start: 20230106, end: 20230106
  2. EPIRUBICIN [Suspect]
     Active Substance: EPIRUBICIN
     Indication: Breast cancer
     Dosage: FREQUENCY: 1/21 D X4 SEQUENTIAL
     Dates: start: 20230106, end: 20230106
  3. CYCLOPHOSPHAMIDE [Suspect]
     Active Substance: CYCLOPHOSPHAMIDE
     Indication: Breast cancer
     Dosage: FREQUENCY: 1/21 D X4 SEQUENTIAL
     Dates: start: 20230106, end: 20230106
  4. SODIUM CHLORIDE [Concomitant]
     Active Substance: SODIUM CHLORIDE
     Route: 041
     Dates: start: 20230106, end: 20230106

REACTIONS (1)
  - Liver injury [Not Recovered/Not Resolved]
